FAERS Safety Report 8419096-5 (Version None)
Quarter: 2012Q2

REPORT INFORMATION
  Report Type: 
  Country: None (occurrence: None)
  Receive Date: 20120607
  Receipt Date: 20120605
  Transmission Date: 20120825
  Serious: Yes (Death, Hospitalization, Other)
  Sender: FDA-Public Use
  Company Number: PHEH2008US07038

PATIENT
  Sex: Female
  Weight: 70.3 kg

DRUGS (18)
  1. ZOMETA [Suspect]
     Dosage: 4 MG, UNK
     Route: 042
  2. NEUPOGEN [Concomitant]
  3. ARIMIDEX [Concomitant]
     Indication: NEOPLASM MALIGNANT
  4. QUINIDINE HCL [Concomitant]
     Indication: HYPERTENSION
  5. MEVACOR [Concomitant]
  6. PROZAC [Concomitant]
  7. TAMOXIFEN CITRATE [Concomitant]
     Dates: start: 19980224
  8. AREDIA [Suspect]
     Dosage: 90 MG, QMO
     Route: 042
     Dates: start: 19980101, end: 19990625
  9. ERTAPENEM [Concomitant]
  10. METOPROLOL TARTRATE [Concomitant]
     Indication: HYPERTENSION
  11. CHEMOTHERAPEUTICS NOS [Concomitant]
  12. LESCOL [Concomitant]
  13. PREVACID [Concomitant]
  14. RADIATION THERAPY [Suspect]
     Dosage: 3250 GY, TOTAL
     Dates: start: 19980505, end: 20060419
  15. RADIATION THERAPY [Suspect]
     Dosage: 3000CGYS / TOTAL
     Dates: start: 20060424, end: 20060512
  16. RADIATION THERAPY [Suspect]
     Dosage: 3000CGYS / TOTAL
     Dates: start: 20060620, end: 20060704
  17. VANCOMYCIN [Concomitant]
  18. PROTONIX [Concomitant]

REACTIONS (50)
  - MULTI-ORGAN FAILURE [None]
  - RIB FRACTURE [None]
  - BONE MARROW FAILURE [None]
  - ATELECTASIS [None]
  - AORTIC VALVE INCOMPETENCE [None]
  - TRICUSPID VALVE INCOMPETENCE [None]
  - OSTEOMYELITIS ACUTE [None]
  - BONE NEOPLASM MALIGNANT [None]
  - ACUTE SINUSITIS [None]
  - BONE PAIN [None]
  - CEREBRAL ATROPHY [None]
  - CARDIAC ARREST [None]
  - PARANASAL SINUS MUCOSAL HYPERTROPHY [None]
  - CHRONIC SINUSITIS [None]
  - HYPERCALCAEMIA [None]
  - RENAL FAILURE [None]
  - BREAST CANCER RECURRENT [None]
  - FALL [None]
  - RENAL CYST [None]
  - DYSPNOEA [None]
  - SINUS DISORDER [None]
  - PAIN IN JAW [None]
  - OSTEOSARCOMA METASTATIC [None]
  - HEPATIC CYST [None]
  - OSTEOPENIA [None]
  - HYPERKALAEMIA [None]
  - HYPOALBUMINAEMIA [None]
  - LEFT ATRIAL DILATATION [None]
  - HUMERUS FRACTURE [None]
  - SYNCOPE [None]
  - PLEURAL EFFUSION [None]
  - HIP FRACTURE [None]
  - UROSEPSIS [None]
  - ANAEMIA [None]
  - ARTERIOSCLEROSIS CORONARY ARTERY [None]
  - METABOLIC ACIDOSIS [None]
  - HYPOPHOSPHATAEMIA [None]
  - IMPAIRED HEALING [None]
  - SEPSIS [None]
  - INTERVERTEBRAL DISC PROTRUSION [None]
  - OSTEONECROSIS OF JAW [None]
  - ORAL DISORDER [None]
  - DYSPHAGIA [None]
  - INFLAMMATION [None]
  - FISTULA [None]
  - PANCYTOPENIA [None]
  - COMPRESSION FRACTURE [None]
  - METASTATIC MALIGNANT MELANOMA [None]
  - MITRAL VALVE INCOMPETENCE [None]
  - FACIAL BONES FRACTURE [None]
